FAERS Safety Report 5708483-1 (Version None)
Quarter: 2008Q2

REPORT INFORMATION
  Report Type: 
  Country: None (occurrence: None)
  Receive Date: 20080417
  Receipt Date: 20080410
  Transmission Date: 20081010
  Serious: Yes (Death, Life-Threatening, Hospitalization)
  Sender: FDA-Public Use
  Company Number: DE-BRISTOL-MYERS SQUIBB COMPANY-14153522

PATIENT
  Age: 56 Year
  Sex: Male
  Weight: 68 kg

DRUGS (6)
  1. CETUXIMAB [Suspect]
     Indication: LARYNGEAL CANCER
     Dates: start: 20080402, end: 20080402
  2. CISPLATIN [Suspect]
     Indication: LARYNGEAL CANCER
     Dates: start: 20080402, end: 20080402
  3. DOCETAXEL [Suspect]
     Indication: LARYNGEAL CANCER
     Dates: start: 20080402, end: 20080402
  4. FLUOROURACIL [Suspect]
     Indication: LARYNGEAL CANCER
     Dates: start: 20080406, end: 20080406
  5. NOVALGIN [Concomitant]
     Indication: PAIN
     Route: 048
     Dates: start: 20080405
  6. BISOPROLOL FUMARATE [Concomitant]
     Indication: BLOOD PRESSURE INCREASED
     Route: 048
     Dates: end: 20080409

REACTIONS (3)
  - CLOSTRIDIAL INFECTION [None]
  - MUCOSAL INFLAMMATION [None]
  - SEPTIC SHOCK [None]
